FAERS Safety Report 8597718-6 (Version None)
Quarter: 2012Q3

REPORT INFORMATION
  Report Type: 
  Country: None (occurrence: None)
  Receive Date: 20120803
  Receipt Date: 20120717
  Transmission Date: 20120928
  Serious: Yes (Death)
  Sender: FDA-Public Use
  Company Number: JPI-P-023430

PATIENT
  Age: 55 Year
  Sex: Female

DRUGS (3)
  1. XYREM [Suspect]
     Indication: NARCOLEPSY
     Dosage: 4.5 GM (2.25 GM,2 IN 1 D),ORAL,  ORAL , 4.5 GM,2 IN 1 D),ORAL
     Route: 048
     Dates: start: 20060602
  2. XYREM [Suspect]
     Indication: NARCOLEPSY
     Dosage: 4.5 GM (2.25 GM,2 IN 1 D),ORAL,  ORAL , 4.5 GM,2 IN 1 D),ORAL
     Route: 048
     Dates: start: 20060101, end: 20060101
  3. XYREM [Suspect]
     Indication: NARCOLEPSY
     Dosage: 4.5 GM (2.25 GM,2 IN 1 D),ORAL,  ORAL , 4.5 GM,2 IN 1 D),ORAL
     Route: 048
     Dates: start: 20060216, end: 20060101

REACTIONS (1)
  - DEATH [None]
